FAERS Safety Report 25858324 (Version 1)
Quarter: 2025Q3

REPORT INFORMATION
  Report Type: Spontaneous
  Country: US (occurrence: US)
  Receive Date: 20250929
  Receipt Date: 20250929
  Transmission Date: 20251020
  Serious: Yes (Other)
  Sender: MACLEODS
  Company Number: US-MACLEODS PHARMA-MAC2025055431

PATIENT

DRUGS (3)
  1. EFAVIRENZ [Suspect]
     Active Substance: EFAVIRENZ
     Indication: Product used for unknown indication
     Route: 065
  2. ARTESUNATE [Suspect]
     Active Substance: ARTESUNATE
     Indication: Product used for unknown indication
     Route: 065
  3. AMODIAQUINE [Suspect]
     Active Substance: AMODIAQUINE
     Indication: Product used for unknown indication
     Route: 065

REACTIONS (3)
  - Hepatotoxicity [Unknown]
  - Transaminases increased [Recovered/Resolved]
  - Drug interaction [Unknown]
